FAERS Safety Report 5827965-5 (Version None)
Quarter: 2008Q3

REPORT INFORMATION
  Report Type: 
  Country: None (occurrence: None)
  Receive Date: 20080730
  Receipt Date: 20080718
  Transmission Date: 20090109
  Serious: Yes (Other)
  Sender: FDA-Public Use
  Company Number: US-PFIZER INC-2008061190

PATIENT
  Sex: Female
  Weight: 54.4 kg

DRUGS (12)
  1. LYRICA [Suspect]
     Indication: NECK INJURY
  2. LYRICA [Suspect]
     Indication: BACK INJURY
  3. INDERAL [Concomitant]
  4. KLONOPIN [Concomitant]
  5. CYMBALTA [Concomitant]
  6. NEXIUM [Concomitant]
  7. ARICEPT [Concomitant]
  8. DURAGESIC-100 [Concomitant]
  9. ROBAXIN [Concomitant]
  10. MAXALT [Concomitant]
  11. MOTRIN [Concomitant]
  12. EXCEDRIN (MIGRAINE) [Concomitant]

REACTIONS (10)
  - ASTHENIA [None]
  - CHEST PAIN [None]
  - DIPLOPIA [None]
  - DYSPNOEA [None]
  - HEADACHE [None]
  - MUSCLE ATROPHY [None]
  - OEDEMA PERIPHERAL [None]
  - SOMNOLENCE [None]
  - VISION BLURRED [None]
  - WEIGHT INCREASED [None]
